FAERS Safety Report 12203328 (Version 2)
Quarter: 2016Q1

REPORT INFORMATION
  Report Type: Report from Study
  Country: CZ (occurrence: CZ)
  Receive Date: 20160323
  Receipt Date: 20160329
  Transmission Date: 20160526
  Serious: Yes (Other)
  Sender: FDA-Public Use
  Company Number: CZ-ROCHE-1730033

PATIENT

DRUGS (5)
  1. CYTARABINE. [Suspect]
     Active Substance: CYTARABINE
     Indication: MANTLE CELL LYMPHOMA
     Dosage: 1-2 G/M2, ONCE OR TWICE DAILY ON DAYS 1 AND 2 EVERY 28-DAY CYCLE
     Route: 042
  2. RITUXIMAB [Suspect]
     Active Substance: RITUXIMAB
     Indication: MANTLE CELL LYMPHOMA
     Dosage: DAYS 1, 18, 15 AND 22 AND THEN ONCE EVERY 56 DAYS.
     Route: 042
  3. GEMCITABINE [Suspect]
     Active Substance: GEMCITABINE\GEMCITABINE HYDROCHLORIDE
     Indication: MANTLE CELL LYMPHOMA
     Dosage: ON DAYS 1, 8 AND 15 EVERY 28 DAYS.
     Route: 042
  4. FLUDARABINE [Suspect]
     Active Substance: FLUDARABINE PHOSPHATE
     Indication: MANTLE CELL LYMPHOMA
     Dosage: EITHER 25 MG/M2 INTRAVENOUSLY OR 40 MG/M2 ORALLY ON DAY 1-5 EVERY 28 DAYS.
     Route: 065
  5. CHLORAMBUCIL [Suspect]
     Active Substance: CHLORAMBUCIL
     Indication: MANTLE CELL LYMPHOMA
     Dosage: DIVIDED OVER 3-10 DAYS
     Route: 048

REACTIONS (13)
  - Thrombocytopenia [Unknown]
  - Anaemia [Unknown]
  - Febrile neutropenia [Unknown]
  - Leukopenia [Unknown]
  - Upper respiratory tract infection [Unknown]
  - Diffuse large B-cell lymphoma [Unknown]
  - Cough [Unknown]
  - Tumour lysis syndrome [Unknown]
  - Pneumonia [Unknown]
  - Embolism [Unknown]
  - Neoplasm [Unknown]
  - Neutropenia [Unknown]
  - Pyrexia [Unknown]
